FAERS Safety Report 5324331-6 (Version None)
Quarter: 2007Q2

REPORT INFORMATION
  Report Type: 
  Country: None (occurrence: None)
  Receive Date: 20070509
  Receipt Date: 20070503
  Transmission Date: 20071010
  Serious: Yes (Hospitalization)
  Sender: FDA-Public Use
  Company Number: 001#1#2007-00317

PATIENT
  Sex: Female

DRUGS (1)
  1. ALPROSTADIL [Suspect]

REACTIONS (3)
  - CONDITION AGGRAVATED [None]
  - PULMONARY OEDEMA [None]
  - RALES [None]
